FAERS Safety Report 11330904 (Version 4)
Quarter: 2021Q2

REPORT INFORMATION
  Report Type: Other
  Country: CA (occurrence: CA)
  Receive Date: 20150803
  Receipt Date: 20210422
  Transmission Date: 20210716
  Serious: Yes (Other)
  Sender: FDA-Public Use
  Company Number: CA-ROCHE-1226044

PATIENT
  Age: 60 Year
  Sex: Male
  Weight: 67 kg

DRUGS (26)
  1. RITUXAN [Suspect]
     Active Substance: RITUXIMAB
     Indication: RHEUMATOID ARTHRITIS
     Dosage: PREVIOUS DOSE: 25/AUG/2011
     Route: 042
     Dates: start: 20110811, end: 20200825
  2. CLONAZEPAM. [Concomitant]
     Active Substance: CLONAZEPAM
  3. OMEGA 3?6?9 [Concomitant]
     Active Substance: FISH OIL
  4. ARTHROTEC [Concomitant]
     Active Substance: DICLOFENAC SODIUM\MISOPROSTOL
  5. VITAMIN B COMPLEX [Concomitant]
     Active Substance: CYANOCOBALAMIN\DEXPANTHENOL\NIACINAMIDE\PYRIDOXINE HYDROCHLORIDE\RIBOFLAVIN 5^-PHOSPHATE SODIUM\THIAMINE HYDROCHLORIDE\VITAMIN B COMPLEX
  6. XELJANZ [Suspect]
     Active Substance: TOFACITINIB CITRATE
     Indication: PRODUCT USED FOR UNKNOWN INDICATION
     Route: 065
  7. DIPHENHYDRAMINE HCL [Concomitant]
     Active Substance: DIPHENHYDRAMINE HYDROCHLORIDE
     Indication: PREMEDICATION
     Route: 048
     Dates: start: 20110811
  8. VITAMIN C [Concomitant]
     Active Substance: ASCORBIC ACID
  9. HYDROMORPHONE [Concomitant]
     Active Substance: HYDROMORPHONE
  10. PANTOPRAZOLE [Concomitant]
     Active Substance: PANTOPRAZOLE
  11. ACETAMINOPHEN. [Concomitant]
     Active Substance: ACETAMINOPHEN
     Indication: PREMEDICATION
     Route: 048
     Dates: start: 20110811
  12. FOLIC ACID. [Concomitant]
     Active Substance: FOLIC ACID
  13. CITALOPRAM [Concomitant]
     Active Substance: CITALOPRAM HYDROBROMIDE
  14. EMTEC [Concomitant]
     Active Substance: ACETAMINOPHEN\CODEINE PHOSPHATE
  15. NAPROXEN SODIUM. [Concomitant]
     Active Substance: NAPROXEN SODIUM
  16. SIMPONI [Suspect]
     Active Substance: GOLIMUMAB
     Indication: PRODUCT USED FOR UNKNOWN INDICATION
     Route: 065
  17. METHOTREXATE. [Concomitant]
     Active Substance: METHOTREXATE
     Route: 058
  18. ZOMIG [Concomitant]
     Active Substance: ZOLMITRIPTAN
     Indication: HEADACHE
  19. RITUXAN [Suspect]
     Active Substance: RITUXIMAB
     Dosage: PREVIOUS DOSE: 25/AUG/2011
     Route: 042
     Dates: start: 20130603, end: 20130620
  20. CALCIUM CITRATE [Concomitant]
     Active Substance: CALCIUM CITRATE
  21. GABAPENTIN. [Concomitant]
     Active Substance: GABAPENTIN
     Indication: NEUROPATHY PERIPHERAL
  22. RAMIPRIL. [Concomitant]
     Active Substance: RAMIPRIL
  23. ACTEMRA [Suspect]
     Active Substance: TOCILIZUMAB
     Indication: RHEUMATOID ARTHRITIS
     Route: 058
     Dates: start: 20201215
  24. METHYLPREDNISOLONE. [Concomitant]
     Active Substance: METHYLPREDNISOLONE
     Indication: PREMEDICATION
     Route: 042
     Dates: start: 20110811
  25. PREDNISONE. [Concomitant]
     Active Substance: PREDNISONE
  26. PANTOLOC [Concomitant]
     Active Substance: PANTOPRAZOLE SODIUM

REACTIONS (15)
  - Depression [Not Recovered/Not Resolved]
  - Cerebrovascular accident [Unknown]
  - Gastrooesophageal reflux disease [Unknown]
  - Wound infection [Unknown]
  - Vasculitis [Unknown]
  - Drug ineffective [Unknown]
  - Inguinal hernia [Unknown]
  - Rheumatoid arthritis [Not Recovered/Not Resolved]
  - Pelvic fracture [Recovering/Resolving]
  - Abdominal hernia [Unknown]
  - Arthropathy [Unknown]
  - Hypertension [Unknown]
  - Allergy to metals [Unknown]
  - Herpes zoster [Unknown]
  - Fall [Unknown]

NARRATIVE: CASE EVENT DATE: 20161108
